FAERS Safety Report 20245239 (Version 5)
Quarter: 2022Q2

REPORT INFORMATION
  Report Type: Spontaneous
  Country: US (occurrence: US)
  Receive Date: 20211229
  Receipt Date: 20220411
  Transmission Date: 20220720
  Serious: Yes (Death, Hospitalization, Other)
  Sender: FDA-Public Use
  Company Number: US-AVEO ONCOLOGY-2021-AVEO-US003690

PATIENT

DRUGS (10)
  1. FOTIVDA [Suspect]
     Active Substance: TIVOZANIB HYDROCHLORIDE
     Indication: Renal cell carcinoma
     Dosage: 1.34 MG DAILY FOR 21 DAYS THEN 7 DAYS OFF
     Route: 048
     Dates: start: 20211014, end: 20220319
  2. FENOFIBRATE [Concomitant]
     Active Substance: FENOFIBRATE
  3. CLONIDINE [Concomitant]
     Active Substance: CLONIDINE
  4. FERROUS SULFATE [Concomitant]
     Active Substance: FERROUS SULFATE
  5. SIMVASTATIN [Concomitant]
     Active Substance: SIMVASTATIN
  6. PHOSPHORUS [Concomitant]
     Active Substance: PHOSPHORUS
  7. CALCIUM CARBONATE [Concomitant]
     Active Substance: CALCIUM CARBONATE
  8. TRAMADOL [Concomitant]
     Active Substance: TRAMADOL
  9. XGEVA [Concomitant]
     Active Substance: DENOSUMAB
  10. CABOMETYX [Concomitant]
     Active Substance: CABOZANTINIB S-MALATE

REACTIONS (14)
  - Diarrhoea [Unknown]
  - Death [Fatal]
  - Cardiac arrest [Unknown]
  - Confusional state [Unknown]
  - Thyroid disorder [Unknown]
  - Neoplasm malignant [Unknown]
  - Nausea [Unknown]
  - Decreased appetite [Recovered/Resolved]
  - Blister [Unknown]
  - Erythema [Unknown]
  - Back pain [Unknown]
  - Arthralgia [Unknown]
  - COVID-19 [Recovered/Resolved]
  - Chills [Recovered/Resolved]
